FAERS Safety Report 4819839-3 (Version None)
Quarter: 2005Q4

REPORT INFORMATION
  Report Type: 
  Country: None (occurrence: None)
  Receive Date: 20051102
  Receipt Date: 20051018
  Transmission Date: 20060501
  Serious: Yes (Hospitalization)
  Sender: FDA-Public Use
  Company Number: 32292

PATIENT
  Age: 74 Year
  Sex: Male

DRUGS (3)
  1. BRINZOLAMIDE 1% SUSPENSION [Suspect]
     Indication: OPEN ANGLE GLAUCOMA
     Dosage: 1 GTT OU BID OPHT
     Route: 047
     Dates: start: 20050214
  2. HYPADIL KOWA [Concomitant]
  3. LATANOPROST SODIUM 0.005% SOLUTION [Concomitant]

REACTIONS (1)
  - PANCREATITIS ACUTE [None]
